FAERS Safety Report 22750777 (Version 6)
Quarter: 2025Q1

REPORT INFORMATION
  Report Type: Report from Study
  Country: US (occurrence: US)
  Receive Date: 20230726
  Receipt Date: 20250220
  Transmission Date: 20250408
  Serious: Yes (Hospitalization, Other)
  Sender: UCB
  Company Number: US-UCBSA-2023037151

PATIENT
  Age: 20 Year
  Sex: Male
  Weight: 112 kg

DRUGS (4)
  1. FINTEPLA [Interacting]
     Active Substance: FENFLURAMINE
     Indication: Lennox-Gastaut syndrome
     Dosage: 5.1 MILLILITER, 2X/DAY (BID)
     Route: 048
     Dates: start: 20230504
  2. FINTEPLA [Interacting]
     Active Substance: FENFLURAMINE
     Route: 048
  3. FINTEPLA [Interacting]
     Active Substance: FENFLURAMINE
     Dosage: 5.1 MILLILITER, 2X/DAY (BID)
     Route: 048
     Dates: start: 2023
  4. FINTEPLA [Interacting]
     Active Substance: FENFLURAMINE
     Dosage: 5.9 MILLILITER, 2X/DAY (BID)
     Route: 048
     Dates: end: 20240507

REACTIONS (5)
  - Rhinovirus infection [Recovered/Resolved]
  - Asthma [Recovered/Resolved]
  - Tricuspid valve incompetence [Not Recovered/Not Resolved]
  - Ejection fraction decreased [Not Recovered/Not Resolved]
  - Drug interaction [Recovered/Resolved]

NARRATIVE: CASE EVENT DATE: 20230628
